FAERS Safety Report 17117715 (Version 3)
Quarter: 2019Q4

REPORT INFORMATION
  Report Type: Spontaneous
  Country: DE (occurrence: DE)
  Receive Date: 20191205
  Receipt Date: 20191230
  Transmission Date: 20200122
  Serious: Yes (Death, Life-Threatening, Hospitalization, Other)
  Sender: FDA-Public Use
  Company Number: DE-MYLANLABS-2019M1119842

PATIENT
  Sex: Male
  Weight: 80 kg

DRUGS (6)
  1. DICLOFENAC [Suspect]
     Active Substance: DICLOFENAC
     Indication: GOUT
     Dosage: 150 MILLIGRAM
     Route: 065
  2. IMBRUVICA [Suspect]
     Active Substance: IBRUTINIB
     Dosage: 280 MILLIGRAM
     Route: 048
     Dates: start: 20180423
  3. FASTURTEC [Concomitant]
     Active Substance: RASBURICASE
     Indication: GOUT
     Dosage: UNK
     Route: 042
  4. ACETYLSALICYLIC ACID [Suspect]
     Active Substance: ASPIRIN
     Indication: ATRIAL FIBRILLATION
     Dosage: 100 MILLIGRAM
     Route: 048
  5. ADENURIC [Concomitant]
     Active Substance: FEBUXOSTAT
     Indication: GOUT
     Dosage: UNK
     Route: 048
  6. IMBRUVICA [Suspect]
     Active Substance: IBRUTINIB
     Indication: CHRONIC LYMPHOCYTIC LEUKAEMIA
     Dosage: 420 MILLIGRAM
     Route: 048
     Dates: start: 20170306, end: 20170428

REACTIONS (6)
  - Haemorrhage [Recovered/Resolved]
  - Depression [Unknown]
  - General physical health deterioration [Fatal]
  - Cardiac disorder [Fatal]
  - Congestive cardiomyopathy [Fatal]
  - Coronary artery disease [Fatal]

NARRATIVE: CASE EVENT DATE: 20170424
